FAERS Safety Report 5295645-3 (Version None)
Quarter: 2007Q2

REPORT INFORMATION
  Report Type: 
  Country: None (occurrence: None)
  Receive Date: 20070410
  Receipt Date: 20070410
  Transmission Date: 20071010
  Serious: Yes (Life-Threatening, Hospitalization)
  Sender: FDA-Public Use
  Company Number: None

PATIENT
  Sex: Female
  Weight: 68 kg

DRUGS (2)
  1. HAEMOCOMPLETTAN - P (KYBERIN-P) - ANTITHROMBIN III [Suspect]
     Indication: FACTOR I DEFICIENCY
     Dosage: DOSING ADJUSTED TO KEEP FIBROGEN LEVELS @ 100 FIRST WK. POST AP AND FIBRINOGEN@50 2ND WEEK POST-OP I
     Route: 042
     Dates: start: 20070320, end: 20070405
  2. HAEMOCOMPLETTAN - P (KYBERIN-P) - ANTITHROMBIN III [Suspect]
     Indication: SURGERY
     Dosage: DOSING ADJUSTED TO KEEP FIBROGEN LEVELS @ 100 FIRST WK. POST AP AND FIBRINOGEN@50 2ND WEEK POST-OP I
     Route: 042
     Dates: start: 20070320, end: 20070405

REACTIONS (5)
  - CATHETER RELATED COMPLICATION [None]
  - JUGULAR VEIN THROMBOSIS [None]
  - PULMONARY EMBOLISM [None]
  - SUBCLAVIAN VEIN THROMBOSIS [None]
  - SUPERIOR VENA CAVAL OCCLUSION [None]
